FAERS Safety Report 21650272 (Version 2)
Quarter: 2022Q4

REPORT INFORMATION
  Report Type: Spontaneous
  Country: CH (occurrence: CH)
  Receive Date: 20221128
  Receipt Date: 20221201
  Transmission Date: 20230113
  Serious: Yes (Death, Life-Threatening, Hospitalization, Other)
  Sender: FDA-Public Use
  Company Number: None

PATIENT
  Age: 64 Year
  Sex: Female

DRUGS (3)
  1. OPDIVO [Suspect]
     Active Substance: NIVOLUMAB
     Indication: Malignant melanoma
     Dosage: OPDIVO? (NIVOLUMAB) 1 MG/M2 AND YERVOY? (IPILIMUMAB) 3 MG/M2 ANALOG CHECKMATE 067, 4TH CYCLE ON 2
     Route: 042
     Dates: start: 20220429, end: 20220523
  2. YERVOY [Suspect]
     Active Substance: IPILIMUMAB
     Indication: Malignant melanoma
     Dosage: OPDIVO? (NIVOLUMAB) 1 MG/M2 AND YERVOY? (IPILIMUMAB) 3 MG/M2 ANALOG CHECKMATE 067, 4TH CYCLE ON 2..
     Route: 042
     Dates: start: 20220429, end: 20220523
  3. LEVOTHYROXINE [Concomitant]
     Active Substance: LEVOTHYROXINE
     Dosage: LEVOTHYROXIN 75 MCG 1 0 0 0 ORALE EINNAHME SEIT UNBEKANNTEM ZEITPUNKT
     Route: 048

REACTIONS (6)
  - Multiple organ dysfunction syndrome [Fatal]
  - Immune-mediated hepatitis [Not Recovered/Not Resolved]
  - Immune thrombocytopenia [Not Recovered/Not Resolved]
  - Polyserositis [Not Recovered/Not Resolved]
  - Immune-mediated thyroiditis [Not Recovered/Not Resolved]
  - Malignant neoplasm progression [Fatal]

NARRATIVE: CASE EVENT DATE: 20220523
